FAERS Safety Report 10576414 (Version 1)
Quarter: 2014Q4

REPORT INFORMATION
  Report Type: Spontaneous
  Country: US (occurrence: None)
  Receive Date: 20141110
  Receipt Date: 20141110
  Transmission Date: 20150529
  Serious: Yes (Other)
  Sender: FDA-Public Use
  Company Number: None

PATIENT
  Age: 56 Year
  Sex: Female
  Weight: 55.79 kg

DRUGS (1)
  1. PERIDEX [Suspect]
     Active Substance: CHLORHEXIDINE GLUCONATE
     Indication: GINGIVAL PAIN
     Dosage: 2 DAILY, TWICE DAILY, GARGLE
     Dates: start: 20140410, end: 20140716

REACTIONS (1)
  - Ageusia [None]

NARRATIVE: CASE EVENT DATE: 20140813
